FAERS Safety Report 5965746-2 (Version None)
Quarter: 2008Q4

REPORT INFORMATION
  Report Type: 
  Country: None (occurrence: None)
  Receive Date: 20081125
  Receipt Date: 20081120
  Transmission Date: 20090506
  Serious: Yes (Other)
  Sender: FDA-Public Use
  Company Number: B0546324A

PATIENT
  Age: 66 Year
  Sex: Female

DRUGS (5)
  1. PAXIL [Suspect]
     Indication: MAJOR DEPRESSION
     Dosage: 30MG PER DAY
     Route: 048
     Dates: start: 20071101, end: 20080501
  2. BROMAZEPAM [Concomitant]
     Route: 065
  3. CIMETIDINE [Concomitant]
  4. BIPERIDEN HYDROCHLORIDE TAB [Concomitant]
  5. MAGNESIUM OXIDE [Concomitant]

REACTIONS (4)
  - AFFECT LABILITY [None]
  - DELIRIUM [None]
  - DRUG WITHDRAWAL SYNDROME [None]
  - LOGORRHOEA [None]
